FAERS Safety Report 9914888 (Version 2)
Quarter: 2014Q1

REPORT INFORMATION
  Report Type: Spontaneous
  Country: US (occurrence: US)
  Receive Date: 20140220
  Receipt Date: 20140220
  Transmission Date: 20141002
  Serious: Yes (Other)
  Sender: FDA-Public Use
  Company Number: US-PFIZER INC-2014024666

PATIENT
  Age: 68 Year
  Sex: Female

DRUGS (1)
  1. ATGAM [Suspect]
     Indication: APLASTIC ANAEMIA
     Dosage: 2690 MG, DAILY
     Route: 042
     Dates: start: 20140114, end: 20140118

REACTIONS (1)
  - Rash [Recovered/Resolved]
